FAERS Safety Report 23479361 (Version 1)
Quarter: 2024Q1

REPORT INFORMATION
  Report Type: Spontaneous
  Country: DE (occurrence: DE)
  Receive Date: 20240205
  Receipt Date: 20240205
  Transmission Date: 20240409
  Serious: Yes (Other)
  Sender: FDA-Public Use
  Company Number: DE-MLMSERVICE-20240119-4775318-1

PATIENT
  Age: 20 Year
  Sex: Female

DRUGS (7)
  1. ETOPOSIDE [Suspect]
     Active Substance: ETOPOSIDE
     Indication: Ovarian cancer stage III
     Dosage: 4 CYCLES
     Dates: start: 202001, end: 202004
  2. CISPLATIN [Suspect]
     Active Substance: CISPLATIN
     Indication: Ovarian cancer stage III
     Dosage: 4 CYCLES
     Dates: start: 202001, end: 202004
  3. IFOSFAMIDE [Suspect]
     Active Substance: IFOSFAMIDE
     Indication: Ovarian cancer stage III
     Dosage: 4 CYCLES
     Dates: start: 202001, end: 202004
  4. ESTRADIOL [Concomitant]
     Active Substance: ESTRADIOL
     Indication: Hormone replacement therapy
     Route: 062
  5. ETOPOSIDE [Suspect]
     Active Substance: ETOPOSIDE
     Indication: Metastases to lymph nodes
     Dosage: 4 CYCLES
     Dates: start: 202001, end: 202004
  6. IFOSFAMIDE [Suspect]
     Active Substance: IFOSFAMIDE
     Indication: Small cell carcinoma
     Dosage: 4 CYCLES
     Dates: start: 202001, end: 202004
  7. CISPLATIN [Suspect]
     Active Substance: CISPLATIN
     Indication: Small cell carcinoma
     Dosage: 4 CYCLES
     Dates: start: 202001, end: 202004

REACTIONS (2)
  - Myelosuppression [Unknown]
  - Cytopenia [Unknown]

NARRATIVE: CASE EVENT DATE: 20200101
